FAERS Safety Report 16097633 (Version 1)
Quarter: 2019Q1

REPORT INFORMATION
  Report Type: Spontaneous
  Country: PL (occurrence: PL)
  Receive Date: 20190320
  Receipt Date: 20190320
  Transmission Date: 20190418
  Serious: Yes (Death)
  Sender: FDA-Public Use
  Company Number: PL-PFIZER INC-2019117005

PATIENT
  Age: 62 Year
  Sex: Female
  Weight: 82 kg

DRUGS (4)
  1. CAMPTO [Suspect]
     Active Substance: IRINOTECAN
     Dosage: UNK
  2. FLUOROURACIL MEDAC [Suspect]
     Active Substance: FLUOROURACIL
     Dosage: 600 MG/M2, UNK
     Route: 041
     Dates: start: 20190115, end: 20190116
  3. CAMPTO [Suspect]
     Active Substance: IRINOTECAN
     Indication: COLON CANCER
     Dosage: 180 MG/M2, UNK
     Route: 042
     Dates: start: 20190115, end: 20190115
  4. FLUOROURACIL MEDAC [Suspect]
     Active Substance: FLUOROURACIL
     Indication: COLON CANCER
     Dosage: 400 MG/M2, UNK
     Route: 040
     Dates: start: 20190115, end: 20190116

REACTIONS (2)
  - Escherichia sepsis [Fatal]
  - Neutropenia [Fatal]

NARRATIVE: CASE EVENT DATE: 20190128
